FAERS Safety Report 8456167-1 (Version None)
Quarter: 2012Q2

REPORT INFORMATION
  Report Type: 
  Country: None (occurrence: None)
  Receive Date: 20120323
  Receipt Date: 20110824
  Transmission Date: 20120825
  Serious: Yes (Other)
  Sender: FDA-Public Use
  Company Number: 163-21880-11083002

PATIENT
  Age: 84 Year
  Sex: Male

DRUGS (25)
  1. ATENOLOL [Concomitant]
  2. TYLENOL ARTHRITIS (PARACETAMOL) [Concomitant]
  3. G/S VITAMIN D (ERGOCALCIFEROL) [Concomitant]
  4. LISINOPRIL [Concomitant]
  5. POTASSIUM CHLORIDE [Concomitant]
  6. REVLIMID [Suspect]
     Indication: MULTIPLE MYELOMA
     Dosage: 25 MG, QD X14D OFF 14D, PO
     Route: 048
     Dates: start: 20090128
  7. COLESTIPOL (COLESTIPOL) [Concomitant]
  8. ALLOPURINOL [Concomitant]
  9. PROCHLORPERAZINE MALEATE [Concomitant]
  10. CYCLOBENZAPRINE [Concomitant]
  11. DEXAMETHASONE (DEXAMETHASONE) [Concomitant]
  12. HUMULIN 70/30 [Concomitant]
  13. TERAZOSIN HCL [Concomitant]
  14. FOLIC ACID [Concomitant]
  15. VITAMIN D [Concomitant]
  16. CALCIUM CARBONATE [Concomitant]
  17. SIMVASTATIN [Concomitant]
  18. HYDROMORPHONE HCL [Concomitant]
  19. PROPO-N/APAP (SINUTAB ^ACHE^) [Concomitant]
  20. MAGNESIUM (MAGNESIUM) [Concomitant]
  21. ASPIRIN [Concomitant]
  22. PREDNISONE TAB [Concomitant]
  23. MAG OXIDE (MAGNESIUM OXIDE) [Concomitant]
  24. COLCHICINE [Concomitant]
  25. BRIMONIDINE TARTRATE [Concomitant]

REACTIONS (7)
  - BACK PAIN [None]
  - FATIGUE [None]
  - OEDEMA PERIPHERAL [None]
  - DIZZINESS [None]
  - DYSPNOEA [None]
  - PAIN IN EXTREMITY [None]
  - CARDIAC FAILURE CONGESTIVE [None]
